FAERS Safety Report 23219616 (Version 2)
Quarter: 2023Q4

REPORT INFORMATION
  Report Type: Spontaneous
  Country: JP (occurrence: JP)
  Receive Date: 20231122
  Receipt Date: 20231206
  Transmission Date: 20240109
  Serious: Yes (Hospitalization, Other)
  Sender: FDA-Public Use
  Company Number: JP-BIAL-BIAL-15669

PATIENT
  Age: 74 Year
  Sex: Male

DRUGS (3)
  1. ONGENTYS [Suspect]
     Active Substance: OPICAPONE
     Indication: Parkinson^s disease
     Dosage: UNK, UNKNOWN
     Route: 048
  2. ONGENTYS [Suspect]
     Active Substance: OPICAPONE
     Dosage: UNK, UNKNOWN
     Route: 050
  3. ONGENTYS [Suspect]
     Active Substance: OPICAPONE
     Dosage: UNK, UNKNOWN
     Route: 048

REACTIONS (4)
  - Pneumonia aspiration [Unknown]
  - Dysphagia [Recovered/Resolved]
  - Off label use [Recovered/Resolved]
  - Off label use [Unknown]

NARRATIVE: CASE EVENT DATE: 20230928
